FAERS Safety Report 8178250 (Version 15)
Quarter: 2018Q4

REPORT INFORMATION
  Report Type: Report from Study
  Country: GB (occurrence: GB)
  Receive Date: 20111012
  Receipt Date: 20181009
  Transmission Date: 20190205
  Serious: Yes (Other)
  Sender: FDA-Public Use
  Company Number: GB-PFIZER INC-2011234725

PATIENT
  Age: 46 Year
  Sex: Female

DRUGS (26)
  1. MYLOTARG [Suspect]
     Active Substance: GEMTUZUMAB OZOGAMICIN
     Indication: MYELODYSPLASTIC SYNDROME
  2. CYTARABINE. [Suspect]
     Active Substance: CYTARABINE
     Indication: MYELODYSPLASTIC SYNDROME
  3. ALLOPURINOL. [Concomitant]
     Active Substance: ALLOPURINOL
     Dosage: 300 MG, UNK
     Route: 048
     Dates: start: 20110828, end: 20110908
  4. DAUNORUBICIN [Suspect]
     Active Substance: DAUNORUBICIN
     Indication: MYELODYSPLASTIC SYNDROME
  5. OMEPRAZOLE. [Concomitant]
     Active Substance: OMEPRAZOLE
     Dosage: 40 MG, UNK
     Route: 048
     Dates: start: 20110820, end: 20110908
  6. TRANEXAMIC ACID. [Concomitant]
     Active Substance: TRANEXAMIC ACID
     Dosage: 500 MG, UNK
     Route: 048
     Dates: start: 20110831, end: 20110908
  7. ANTI-D IMMUNOGLOBULIN [Concomitant]
     Active Substance: HUMAN RHO(D) IMMUNE GLOBULIN
     Dosage: 250 IU, UNK
     Route: 058
     Dates: start: 20110902, end: 20110902
  8. PARACETAMOL [Concomitant]
     Active Substance: ACETAMINOPHEN
     Dosage: 1 G, UNK
     Route: 048
     Dates: start: 20110817, end: 20110828
  9. MYLOTARG [Suspect]
     Active Substance: GEMTUZUMAB OZOGAMICIN
     Indication: ACUTE MYELOID LEUKAEMIA
     Dosage: 3 MG, UNK
     Dates: start: 20110819, end: 20110828
  10. ETOPOSIDE. [Suspect]
     Active Substance: ETOPOSIDE
     Indication: MYELODYSPLASTIC SYNDROME
  11. CYTARABINE. [Suspect]
     Active Substance: CYTARABINE
     Indication: ACUTE MYELOID LEUKAEMIA
     Dosage: UNK
     Dates: start: 20110819, end: 20110828
  12. VANCOMYCIN [Suspect]
     Active Substance: VANCOMYCIN
     Dosage: 1 G, UNK
     Dates: start: 20110904, end: 20110909
  13. AMBISOME [Suspect]
     Active Substance: AMPHOTERICIN B
     Dosage: 1000 MG, UNK
     Route: 042
     Dates: start: 20110831, end: 20110831
  14. MEROPENEM. [Suspect]
     Active Substance: MEROPENEM
     Dosage: 1 G, UNK
     Route: 042
     Dates: start: 20110905, end: 20110910
  15. DAUNORUBICIN [Suspect]
     Active Substance: DAUNORUBICIN
     Indication: ACUTE MYELOID LEUKAEMIA
     Dosage: UNK
     Dates: start: 20110819, end: 20110828
  16. LORAZEPAM. [Concomitant]
     Active Substance: LORAZEPAM
     Dosage: 1 MG, UNK
     Route: 048
     Dates: start: 20110914, end: 20110914
  17. ONDANSETRON [Concomitant]
     Active Substance: ONDANSETRON
     Dosage: 8 MG, UNK
     Route: 048
     Dates: start: 20110822, end: 20110828
  18. CODEINE [Concomitant]
     Active Substance: CODEINE
     Dosage: 30 MG, UNK
     Route: 048
     Dates: start: 20110817, end: 20110820
  19. ORAMORPH [Concomitant]
     Active Substance: MORPHINE SULFATE
     Dosage: 10 MG, 5 TO 10MG
     Route: 042
     Dates: start: 20110822, end: 20110823
  20. ETOPOSIDE. [Suspect]
     Active Substance: ETOPOSIDE
     Indication: ACUTE MYELOID LEUKAEMIA
     Dosage: UNK
     Dates: start: 20110819, end: 20110828
  21. RANITIDINE. [Concomitant]
     Active Substance: RANITIDINE
     Dosage: 150 MG, UNK
     Route: 048
     Dates: start: 20110908, end: 20110912
  22. CYCLIZINE [Concomitant]
     Active Substance: CYCLIZINE
     Dosage: 150 MG, UNK
     Route: 042
     Dates: start: 20110903, end: 20110914
  23. TAZOCIN [Suspect]
     Active Substance: PIPERACILLIN SODIUM\TAZOBACTAM SODIUM
     Dosage: 4.5 G, UNK
     Route: 042
     Dates: start: 20110822, end: 20110825
  24. NORETHISTERONE [Suspect]
     Active Substance: NORETHINDRONE
     Dosage: 5 G, UNK
     Dates: start: 20110818
  25. DOCUSATE SODIUM. [Concomitant]
     Active Substance: DOCUSATE SODIUM
     Dosage: 20 MG, UNK
     Route: 048
     Dates: start: 20110823, end: 20110914
  26. ACICLOVIR [Concomitant]
     Active Substance: ACYCLOVIR
     Dosage: 900 MG, UNK
     Route: 048

REACTIONS (3)
  - Alanine aminotransferase increased [Recovered/Resolved]
  - Platelet count increased [Recovered/Resolved]
  - Thrombocytopenia [Unknown]

NARRATIVE: CASE EVENT DATE: 20110910
